FAERS Safety Report 5065948-6 (Version None)
Quarter: 2006Q3

REPORT INFORMATION
  Report Type: 
  Country: None (occurrence: None)
  Receive Date: 20060728
  Receipt Date: 20060728
  Transmission Date: 20061208
  Serious: Yes (Hospitalization)
  Sender: FDA-Public Use
  Company Number: None

PATIENT
  Age: 55 Year
  Sex: Female

DRUGS (9)
  1. TAMOXIFEN CITRATE [Suspect]
     Indication: BREAST CANCER
     Dosage: 20 MG PO BID
     Route: 048
     Dates: start: 20020101
  2. VYTORIN [Concomitant]
  3. HYZAAR [Concomitant]
  4. TAMOXIFEN CITRATE [Concomitant]
  5. CALCIUM GLUCONATE [Concomitant]
  6. ACTONEL [Concomitant]
  7. PREVACID [Concomitant]
  8. VERAPAMIL [Concomitant]
  9. AGGRENOX [Concomitant]

REACTIONS (3)
  - COUGH [None]
  - DEEP VEIN THROMBOSIS [None]
  - PULMONARY EMBOLISM [None]
